FAERS Safety Report 24659841 (Version 1)
Quarter: 2024Q4

REPORT INFORMATION
  Report Type: Spontaneous
  Country: NO (occurrence: NO)
  Receive Date: 20241125
  Receipt Date: 20241125
  Transmission Date: 20250115
  Serious: Yes (Hospitalization)
  Sender: BAXTER
  Company Number: None

PATIENT
  Age: 75 Year
  Sex: Female

DRUGS (8)
  1. CYCLOPHOSPHAMIDE [Suspect]
     Active Substance: CYCLOPHOSPHAMIDE
     Indication: Diffuse large B-cell lymphoma
     Dosage: (CHOP), AT AN UNSPECIFIED DOSE AND FREQUENCY, PHARMACEUTICAL FORM (DOSAGE FORM): 4-R-CHOP + RITUXIMA
     Route: 065
     Dates: start: 20240305, end: 20240518
  2. CYCLOPHOSPHAMIDE [Suspect]
     Active Substance: CYCLOPHOSPHAMIDE
     Dosage: UNK
     Route: 065
  3. DOXORUBICIN [Suspect]
     Active Substance: DOXORUBICIN
     Indication: Diffuse large B-cell lymphoma
     Dosage: (CHOP), AT AN UNSPECIFIED DOSE AND FREQUENCY, PHARMACEUTICAL FORM (DOSAGE FORM): 4-R-CHOP + RITUXIMA
     Route: 065
     Dates: start: 20240305, end: 20240518
  4. DOXORUBICIN [Suspect]
     Active Substance: DOXORUBICIN
     Dosage: UNK
     Route: 065
  5. VINCRISTINE [Suspect]
     Active Substance: VINCRISTINE
     Indication: Diffuse large B-cell lymphoma
     Dosage: (CHOP), AT AN UNSPECIFIED DOSE AND FREQUENCY, PHARMACEUTICAL FORM (DOSAGE FORM): 4-R-CHOP + RITUXIMA
     Route: 065
     Dates: start: 20240305, end: 20240518
  6. RITUXIMAB [Suspect]
     Active Substance: RITUXIMAB
     Indication: Diffuse large B-cell lymphoma
     Dosage: AT AN UNSPECIFIED DOSE AND FREQUENCY, PHARMACEUTICAL FORM (DOSAGE FORM): 4-R-CHOP + RITUXIMAB COURSE
     Route: 065
     Dates: start: 20240305, end: 20240518
  7. RITUXIMAB [Suspect]
     Active Substance: RITUXIMAB
     Dosage: UNK
     Route: 065
  8. LOSARTAN [Concomitant]
     Active Substance: LOSARTAN
     Indication: Hypertension
     Dosage: 50 MG ONCE DAILY
     Route: 065

REACTIONS (1)
  - Psychotic disorder [Not Recovered/Not Resolved]

NARRATIVE: CASE EVENT DATE: 20240528
